FAERS Safety Report 6900502-X (Version None)
Quarter: 2010Q3

REPORT INFORMATION
  Report Type: 
  Country: None (occurrence: None)
  Receive Date: 20100803
  Receipt Date: 20100722
  Transmission Date: 20110219
  Serious: Yes (Other)
  Sender: FDA-Public Use
  Company Number: US-CELGENEUS-163-21880-10070198

PATIENT
  Sex: Male
  Weight: 98.972 kg

DRUGS (18)
  1. REVLIMID [Suspect]
     Indication: MULTIPLE MYELOMA
     Route: 048
     Dates: start: 20100218, end: 20100413
  2. REVLIMID [Suspect]
     Route: 048
     Dates: start: 20100428, end: 20100510
  3. REVLIMID [Suspect]
     Route: 048
     Dates: start: 20100519
  4. BIAXIN [Concomitant]
     Indication: PROPHYLAXIS
     Dosage: 1
     Route: 048
     Dates: start: 20100218
  5. ANTIMICROBIAL [Concomitant]
     Route: 048
     Dates: start: 20100101
  6. DEXAMETHASONE [Concomitant]
     Indication: PRODUCT USED FOR UNKNOWN INDICATION
     Route: 048
     Dates: start: 20100428, end: 20100510
  7. DEXAMETHASONE [Concomitant]
     Route: 048
     Dates: start: 20100519
  8. SYNTHROID [Concomitant]
     Indication: PRODUCT USED FOR UNKNOWN INDICATION
     Route: 048
     Dates: start: 20100428
  9. PEPCID AC [Concomitant]
     Indication: PRODUCT USED FOR UNKNOWN INDICATION
     Route: 048
     Dates: start: 20100428
  10. ASPIRIN [Concomitant]
     Indication: PRODUCT USED FOR UNKNOWN INDICATION
     Route: 048
     Dates: start: 20100428
  11. AMBIEN [Concomitant]
     Indication: PRODUCT USED FOR UNKNOWN INDICATION
     Route: 048
     Dates: start: 20100428
  12. HYDROCODONE BITARTRATE [Concomitant]
     Indication: PRODUCT USED FOR UNKNOWN INDICATION
     Dosage: 1
     Route: 048
     Dates: start: 20100428
  13. SALINE [Concomitant]
     Indication: PRODUCT USED FOR UNKNOWN INDICATION
     Route: 051
     Dates: start: 20100510, end: 20100604
  14. HEPARIN [Concomitant]
     Indication: PRODUCT USED FOR UNKNOWN INDICATION
     Dosage: 100 UNITS/ML
     Route: 051
     Dates: start: 20100510, end: 20100604
  15. AUGMENTIN '125' [Concomitant]
     Indication: PRODUCT USED FOR UNKNOWN INDICATION
     Dosage: 875-125MG
     Route: 048
     Dates: start: 20100428, end: 20100510
  16. CLINDAMYCIN [Concomitant]
     Indication: PRODUCT USED FOR UNKNOWN INDICATION
     Route: 048
     Dates: start: 20100428, end: 20100507
  17. PEARLS IC PROBIOTICS [Concomitant]
     Indication: PRODUCT USED FOR UNKNOWN INDICATION
     Route: 048
     Dates: start: 20100512
  18. ZEGERID [Concomitant]
     Indication: PRODUCT USED FOR UNKNOWN INDICATION
     Route: 065

REACTIONS (4)
  - CHOLELITHIASIS [None]
  - FATIGUE [None]
  - HERNIA [None]
  - OSTEOMYELITIS [None]
